FAERS Safety Report 13568933 (Version 1)
Quarter: 2017Q2

REPORT INFORMATION
  Report Type: Spontaneous
  Country: CH (occurrence: CH)
  Receive Date: 20170522
  Receipt Date: 20170522
  Transmission Date: 20170830
  Serious: Yes (Hospitalization)
  Sender: FDA-Public Use
  Company Number: CH-TEVA-768458ISR

PATIENT
  Age: 64 Year
  Sex: Male

DRUGS (18)
  1. DAFALGAN [Concomitant]
     Active Substance: ACETAMINOPHEN
  2. SIMPONI [Interacting]
     Active Substance: GOLIMUMAB
     Indication: RHEUMATOID ARTHRITIS
     Route: 058
     Dates: start: 20170201
  3. PREDNISON [Concomitant]
     Active Substance: PREDNISONE
     Dates: start: 201606
  4. CETALLERG [Concomitant]
     Active Substance: CETIRIZINE HYDROCHLORIDE
  5. PANTOPRAZOLE [Interacting]
     Active Substance: PANTOPRAZOLE
     Dates: start: 201407
  6. FLECTOPARIN TISSUGEL [Concomitant]
     Dosage: MEDICATED DRESSINGS, PLASTERS WITH SUBSTANCE
     Dates: end: 20170405
  7. METHOTREXATE. [Suspect]
     Active Substance: METHOTREXATE
     Indication: RHEUMATOID ARTHRITIS
     Dosage: STARTED ADMINISTRATION WITH 10 MG/WEEK ON 02 JUNE 2016
     Route: 058
     Dates: start: 20160818, end: 20170322
  8. ACIDUM FOLICUM [Concomitant]
     Active Substance: FOLIC ACID
     Dates: start: 20160602
  9. CRESTOR [Concomitant]
     Active Substance: ROSUVASTATIN CALCIUM
     Dates: start: 201407
  10. VITAMIN B6 [Concomitant]
     Active Substance: PYRIDOXINE HYDROCHLORIDE
     Dates: start: 201607, end: 201703
  11. ISONIAZID. [Concomitant]
     Active Substance: ISONIAZID
     Dates: start: 201607, end: 201703
  12. ASS CARDIO [Interacting]
     Active Substance: ASPIRIN
     Dates: start: 201407
  13. VITAMIN D3 [Concomitant]
     Active Substance: CHOLECALCIFEROL
  14. CALCIMAGON D3 [Concomitant]
     Active Substance: CALCIUM\CHOLECALCIFEROL
     Dates: start: 201607
  15. MOVICOL [Concomitant]
     Active Substance: POLYETHYLENE GLYCOL 3350\POTASSIUM CHLORIDE\SODIUM BICARBONATE\SODIUM CHLORIDE
     Dates: start: 201407
  16. SYMBICORT [Concomitant]
     Active Substance: BUDESONIDE\FORMOTEROL FUMARATE DIHYDRATE
     Dosage: POWDERS, UNIT DOSE
     Dates: start: 201606
  17. NOVALGIN [Interacting]
     Active Substance: METAMIZOLE SODIUM
  18. LAXOBERON [Concomitant]
     Active Substance: SODIUM PICOSULFATE
     Dosage: LIQUIDS, DROPS
     Dates: start: 201606

REACTIONS (5)
  - Mouth ulceration [Unknown]
  - Gastritis [Recovered/Resolved]
  - Drug interaction [Recovering/Resolving]
  - Pancytopenia [Recovering/Resolving]
  - Labelled drug-drug interaction medication error [Recovering/Resolving]

NARRATIVE: CASE EVENT DATE: 20170322
